FAERS Safety Report 8434167-5 (Version None)
Quarter: 2012Q2

REPORT INFORMATION
  Report Type: 
  Country: None (occurrence: None)
  Receive Date: 20120613
  Receipt Date: 20120607
  Transmission Date: 20120825
  Serious: Yes (Death, Hospitalization)
  Sender: FDA-Public Use
  Company Number: US-ACTELION-A-NJ2012-66517

PATIENT

DRUGS (5)
  1. REMODULIN [Suspect]
  2. COUMADIN [Concomitant]
  3. DIGOXIN [Concomitant]
  4. TRACLEER [Suspect]
     Indication: PULMONARY HYPERTENSION
     Dosage: UNK
     Route: 048
     Dates: start: 20120417, end: 20120601
  5. REVATIO [Concomitant]

REACTIONS (3)
  - PNEUMONIA [None]
  - DYSPNOEA [None]
  - URINE OUTPUT DECREASED [None]
